FAERS Safety Report 7568799-3 (Version None)
Quarter: 2011Q2

REPORT INFORMATION
  Report Type: 
  Country: None (occurrence: None)
  Receive Date: 20110623
  Receipt Date: 20110617
  Transmission Date: 20111010
  Serious: Yes (Other)
  Sender: FDA-Public Use
  Company Number: CA-PFIZER INC-2011126401

PATIENT
  Age: 70 Year
  Sex: Female

DRUGS (3)
  1. XALATAN [Suspect]
     Indication: GLAUCOMA
     Dosage: 1 GTT, 1X/DAY (AT BEDTIME)
     Route: 047
  2. LASIX [Concomitant]
     Dosage: UNK
  3. NEXIUM [Concomitant]
     Dosage: UNK

REACTIONS (2)
  - EYE LASER SURGERY [None]
  - INTRAOCULAR PRESSURE INCREASED [None]
